FAERS Safety Report 6786485-4 (Version None)
Quarter: 2010Q2

REPORT INFORMATION
  Report Type: 
  Country: None (occurrence: None)
  Receive Date: 20100623
  Receipt Date: 20100614
  Transmission Date: 20101027
  Serious: Yes (Hospitalization, Other)
  Sender: FDA-Public Use
  Company Number: B0651002A

PATIENT
  Sex: Male

DRUGS (13)
  1. SERETIDE [Suspect]
     Indication: DRUG USE FOR UNKNOWN INDICATION
     Route: 055
     Dates: start: 20060101, end: 20080801
  2. BRONCHODUAL [Suspect]
     Indication: DRUG USE FOR UNKNOWN INDICATION
     Route: 055
     Dates: start: 20060101, end: 20080801
  3. MOXYDAR [Suspect]
     Indication: DRUG USE FOR UNKNOWN INDICATION
     Route: 048
     Dates: start: 20060101, end: 20080801
  4. EZETIMIBE/SIMVASTATIN [Concomitant]
     Route: 065
  5. KARDEGIC [Concomitant]
     Route: 065
  6. FUROSEMIDE [Concomitant]
     Route: 065
  7. VASTEN [Concomitant]
     Route: 065
  8. ALDALIX [Concomitant]
     Route: 065
  9. DISCOTRINE [Concomitant]
     Route: 065
  10. NEXIUM [Concomitant]
     Route: 065
  11. CORDARONE [Concomitant]
     Route: 065
  12. PRAXILENE [Concomitant]
     Route: 065
  13. TOPAAL [Concomitant]
     Route: 065

REACTIONS (6)
  - COUGH [None]
  - HAEMATOMA [None]
  - LOSS OF CONSCIOUSNESS [None]
  - MOVEMENT DISORDER [None]
  - MUSCULOSKELETAL PAIN [None]
  - SYNCOPE [None]
